FAERS Safety Report 9059664 (Version 4)
Quarter: 2013Q1

REPORT INFORMATION
  Report Type: Spontaneous
  Country: FR (occurrence: FR)
  Receive Date: 20130212
  Receipt Date: 20130314
  Transmission Date: 20140127
  Serious: Yes (Hospitalization)
  Sender: FDA-Public Use
  Company Number: FR-AMGEN-FRASP2013008177

PATIENT
  Age: 65 Year
  Sex: Male

DRUGS (14)
  1. ENBREL [Suspect]
     Indication: PSORIATIC ARTHROPATHY
     Dosage: UNK
     Route: 058
  2. METHOTREXATE SODIUM [Suspect]
     Indication: PSORIATIC ARTHROPATHY
     Dosage: 15 MG, WEEKLY
     Route: 058
     Dates: start: 201002
  3. METHOTREXATE SODIUM [Suspect]
     Dosage: 20 MG, WEEKLY
     Route: 058
     Dates: end: 201203
  4. REMICADE [Suspect]
     Indication: PSORIATIC ARTHROPATHY
     Dosage: UNK
     Route: 041
     Dates: end: 201112
  5. HUMIRA [Suspect]
     Indication: PSORIATIC ARTHROPATHY
     Dosage: 40 MG, EVERY 15 DAY
     Route: 058
     Dates: start: 201112, end: 201204
  6. HUMIRA [Suspect]
     Dosage: 40 MG, EVERY 15 DAY
     Route: 058
     Dates: start: 201208
  7. STELARA [Suspect]
     Dosage: UNK
     Route: 058
     Dates: start: 201004
  8. AMLOR [Concomitant]
     Dosage: UNK
  9. ACTONEL [Concomitant]
     Dosage: UNK
  10. OGAST [Concomitant]
     Dosage: UNK
  11. CACIT D3 [Concomitant]
     Dosage: UNK
  12. DAIVOBET [Concomitant]
     Dosage: UNK
  13. DIPROSONE                          /00008504/ [Concomitant]
     Dosage: UNK
  14. MACROGOL [Concomitant]
     Dosage: UNK

REACTIONS (1)
  - Renal neoplasm [Not Recovered/Not Resolved]
